FAERS Safety Report 12633542 (Version 3)
Quarter: 2017Q4

REPORT INFORMATION
  Report Type: Spontaneous
  Country: JP (occurrence: JP)
  Receive Date: 20160808
  Receipt Date: 20171005
  Transmission Date: 20180320
  Serious: Yes (Hospitalization)
  Sender: FDA-Public Use
  Company Number: JP-PFIZER INC-2016372300

PATIENT
  Age: 13 Year
  Sex: Male
  Weight: 27 kg

DRUGS (3)
  1. GENOTROPIN [Suspect]
     Active Substance: SOMATROPIN
     Indication: GROWTH HORMONE DEFICIENCY
     Dosage: 0.6 MG, 1X/DAY
     Route: 058
     Dates: start: 20131224, end: 20150329
  2. GENOTROPIN [Suspect]
     Active Substance: SOMATROPIN
     Indication: DWARFISM
     Dosage: 0.75 MG, 1X/DAY
     Route: 058
     Dates: start: 20150330, end: 20160327
  3. GENOTROPIN [Suspect]
     Active Substance: SOMATROPIN
     Dosage: 0.9 MG, 1X/DAY
     Route: 058
     Dates: start: 20160328, end: 20160721

REACTIONS (1)
  - Hepatoblastoma [Recovered/Resolved]

NARRATIVE: CASE EVENT DATE: 20160721
